FAERS Safety Report 6868213-7 (Version None)
Quarter: 2010Q3

REPORT INFORMATION
  Report Type: 
  Country: None (occurrence: None)
  Receive Date: 20100722
  Receipt Date: 20080613
  Transmission Date: 20110219
  Serious: No
  Sender: FDA-Public Use
  Company Number: US-PFIZER INC-2008039746

PATIENT
  Sex: Female
  Weight: 48.53 kg

DRUGS (9)
  1. CHANTIX [Suspect]
     Indication: SMOKING CESSATION THERAPY
     Route: 048
     Dates: start: 20080418
  2. GLYBURIDE [Concomitant]
     Indication: DIABETES MELLITUS
     Route: 048
  3. METFORMIN [Concomitant]
     Indication: DIABETES MELLITUS
     Route: 048
  4. ANTIHYPERTENSIVES [Concomitant]
     Indication: BLOOD PRESSURE ABNORMAL
     Route: 048
  5. DIGOXIN [Concomitant]
     Indication: TACHYCARDIA
     Route: 048
  6. MULTI-VITAMINS [Concomitant]
     Route: 048
  7. IRON [Concomitant]
     Route: 048
  8. SODIUM [Concomitant]
     Route: 048
  9. ANTINEOPLASTIC AGENTS [Concomitant]
     Route: 048

REACTIONS (4)
  - ASTHENIA [None]
  - DYSPNOEA [None]
  - NAUSEA [None]
  - SOMNOLENCE [None]
